FAERS Safety Report 23680623 (Version 1)
Quarter: 2024Q1

REPORT INFORMATION
  Report Type: Spontaneous
  Country: AU (occurrence: AU)
  Receive Date: 20240328
  Receipt Date: 20240328
  Transmission Date: 20240410
  Serious: Yes (Other)
  Sender: FDA-Public Use
  Company Number: AU-ALKEM LABORATORIES LIMITED-AU-ALKEM-2024-05052

PATIENT
  Sex: Female

DRUGS (5)
  1. RASAGILINE MESYLATE [Suspect]
     Active Substance: RASAGILINE MESYLATE
     Indication: Product used for unknown indication
     Dosage: UNK
     Route: 065
  2. ROTIGOTINE [Suspect]
     Active Substance: ROTIGOTINE
     Indication: Product used for unknown indication
     Dosage: UNK
     Route: 065
  3. SINEMET CR [Suspect]
     Active Substance: CARBIDOPA\LEVODOPA
     Indication: Product used for unknown indication
     Dosage: UNK
     Route: 065
  4. SINEMET CR [Suspect]
     Active Substance: CARBIDOPA\LEVODOPA
     Dosage: UNK
     Route: 065
  5. PRAMIPEXOLE [Suspect]
     Active Substance: PRAMIPEXOLE\PRAMIPEXOLE DIHYDROCHLORIDE
     Indication: Product used for unknown indication
     Dosage: UNK
     Route: 065

REACTIONS (5)
  - Gastrointestinal necrosis [Unknown]
  - Obstruction gastric [Unknown]
  - Gastritis [Unknown]
  - Hiatus hernia [Unknown]
  - Product use issue [Unknown]
